FAERS Safety Report 14150044 (Version 1)
Quarter: 2017Q4

REPORT INFORMATION
  Report Type: Spontaneous
  Country: US (occurrence: US)
  Receive Date: 20171101
  Receipt Date: 20171101
  Transmission Date: 20180321
  Serious: No
  Sender: FDA-Public Use
  Company Number: US-GLAXOSMITHKLINE-US2017163194

PATIENT
  Age: 65 Year
  Sex: Male

DRUGS (4)
  1. TRANSDERM SCOP [Suspect]
     Active Substance: SCOPOLAMINE
     Dosage: UNK, ONE PATCH
     Dates: start: 20170929, end: 20170930
  2. TRANSDERM SCOP [Suspect]
     Active Substance: SCOPOLAMINE
     Indication: MOTION SICKNESS
     Dosage: UNK, ONE PATCH
     Dates: start: 20170526, end: 20170527
  3. TRANSDERM SCOP [Suspect]
     Active Substance: SCOPOLAMINE
     Dosage: UNK, ONE PATCH
     Dates: start: 20170721, end: 20170722
  4. TRANSDERM SCOP [Suspect]
     Active Substance: SCOPOLAMINE
     Dosage: UNK
     Dates: start: 201604

REACTIONS (6)
  - Lip dry [Unknown]
  - Dysgeusia [Unknown]
  - Vomiting [Recovered/Resolved]
  - Dry mouth [Unknown]
  - Nausea [Recovered/Resolved]
  - Drug ineffective [Recovered/Resolved]

NARRATIVE: CASE EVENT DATE: 20170930
